FAERS Safety Report 22661220 (Version 1)
Quarter: 2023Q2

REPORT INFORMATION
  Report Type: Spontaneous
  Country: US (occurrence: US)
  Receive Date: 20230630
  Receipt Date: 20230630
  Transmission Date: 20230722
  Serious: No
  Sender: FDA-Public Use
  Company Number: US-JAZZ PHARMACEUTICALS-2022-US-025159

PATIENT
  Sex: Male

DRUGS (1)
  1. EPIDIOLEX [Suspect]
     Active Substance: CANNABIDIOL
     Indication: Epilepsy
     Dosage: WK 1: 2.5ML VIA G-TUBE BID
     Dates: start: 20220415

REACTIONS (5)
  - Depression [Unknown]
  - Anxiety [Unknown]
  - Eating disorder [Unknown]
  - Diarrhoea [Unknown]
  - Somnolence [Unknown]
